FAERS Safety Report 7111684-1 (Version None)
Quarter: 2010Q4

REPORT INFORMATION
  Report Type: 
  Country: None (occurrence: None)
  Receive Date: 20101118
  Receipt Date: 20101115
  Transmission Date: 20110411
  Serious: No
  Sender: FDA-Public Use
  Company Number: US-RB-013355-10

PATIENT
  Age: 51 Year
  Sex: Female

DRUGS (1)
  1. SUBOXONE [Suspect]
     Indication: DRUG DEPENDENCE
     Dosage: DOSING INFORMATION UNKNOWN
     Route: 065

REACTIONS (7)
  - ANXIETY [None]
  - BURNOUT SYNDROME [None]
  - INSOMNIA [None]
  - PAIN IN EXTREMITY [None]
  - TOOTH DISORDER [None]
  - TREMOR [None]
  - WEIGHT INCREASED [None]
